FAERS Safety Report 25833957 (Version 2)
Quarter: 2025Q4

REPORT INFORMATION
  Report Type: Spontaneous
  Country: US (occurrence: US)
  Receive Date: 20250923
  Receipt Date: 20251021
  Transmission Date: 20260117
  Serious: Yes (Hospitalization, Other)
  Sender: SANOFI AVENTIS
  Company Number: US-SA-2025SA107024

PATIENT
  Age: 45 Year
  Sex: Female

DRUGS (2)
  1. DUPIXENT [Suspect]
     Active Substance: DUPILUMAB
     Indication: Dermatitis atopic
     Dosage: 600 MG, 1X
     Dates: start: 202503, end: 202503
  2. DUPIXENT [Suspect]
     Active Substance: DUPILUMAB
     Dosage: 300 MG, QOW
     Dates: start: 2025

REACTIONS (4)
  - Pneumonia [Unknown]
  - Systemic lupus erythematosus [Unknown]
  - Thyroid disorder [Unknown]
  - Viral infection [Unknown]

NARRATIVE: CASE EVENT DATE: 20250101
